FAERS Safety Report 16055644 (Version 1)
Quarter: 2019Q1

REPORT INFORMATION
  Report Type: Spontaneous
  Country: US (occurrence: US)
  Receive Date: 20190208
  Receipt Date: 20190208
  Transmission Date: 20190418
  Serious: Yes (Hospitalization)
  Sender: FDA-Public Use
  Company Number: None

PATIENT
  Age: 83 Year
  Sex: Female

DRUGS (20)
  1. ASMANEX AER [Concomitant]
  2. AZOPT SUS [Concomitant]
  3. ERYTHROMYCIN. [Concomitant]
     Active Substance: ERYTHROMYCIN
  4. NYSTATIN SUS [Concomitant]
  5. TOBRAMYCIN 300MG/5ML [Suspect]
     Active Substance: TOBRAMYCIN
     Indication: CYSTIC FIBROSIS
     Dosage: ?          OTHER ROUTE:NEBULIZER?
     Dates: start: 20080214
  6. BUDESONIDE SUS [Concomitant]
  7. PREVACID [Concomitant]
     Active Substance: LANSOPRAZOLE
  8. THEOPHYLLINE [Concomitant]
     Active Substance: THEOPHYLLINE ANHYDROUS
  9. TYLENOL [Concomitant]
     Active Substance: ACETAMINOPHEN
  10. OXYCARBAZEPIN [Concomitant]
  11. PREDNISONE. [Concomitant]
     Active Substance: PREDNISONE
  12. ACIDOPHILUS [Concomitant]
     Active Substance: LACTOBACILLUS ACIDOPHILUS
  13. FUROSEMIDE. [Concomitant]
     Active Substance: FUROSEMIDE
  14. LUMIGAN SOL [Concomitant]
  15. PROLIA [Concomitant]
     Active Substance: DENOSUMAB
  16. ACYCLOVIR. [Concomitant]
     Active Substance: ACYCLOVIR
  17. CIPRO [Concomitant]
     Active Substance: CIPROFLOXACIN HYDROCHLORIDE
  18. KLOR-CON10 [Concomitant]
  19. LEVOTHYROXIN [Concomitant]
     Active Substance: LEVOTHYROXINE
  20. PULMOZYME [Concomitant]
     Active Substance: DORNASE ALFA

REACTIONS (1)
  - Infection [None]

NARRATIVE: CASE EVENT DATE: 20190129
